FAERS Safety Report 6769608-2 (Version None)
Quarter: 2010Q2

REPORT INFORMATION
  Report Type: 
  Country: None (occurrence: None)
  Receive Date: 20100608
  Receipt Date: 20100604
  Transmission Date: 20101027
  Serious: Yes (Death)
  Sender: FDA-Public Use
  Company Number: 2010SP031443

PATIENT
  Sex: Male

DRUGS (2)
  1. PEGATRON         (PEGYLATED INTERFERON ALFA-2B W/RIBAVIRIN) [Suspect]
     Indication: HEPATITIS
     Dates: start: 20100319
  2. NITROLINGUAL [Concomitant]

REACTIONS (1)
  - MYOCARDIAL INFARCTION [None]
